FAERS Safety Report 7431778-0 (Version None)
Quarter: 2011Q2

REPORT INFORMATION
  Report Type: 
  Country: None (occurrence: None)
  Receive Date: 20110420
  Receipt Date: 20110420
  Transmission Date: 20111010
  Serious: Yes (Other)
  Sender: FDA-Public Use
  Company Number: None

PATIENT
  Age: 42 Year
  Sex: Female

DRUGS (1)
  1. DEXAMETHASONE SODIUM PHOSPHATE [Suspect]

REACTIONS (4)
  - INCORRECT DOSE ADMINISTERED [None]
  - DRUG LABEL CONFUSION [None]
  - DEVICE DIFFICULT TO USE [None]
  - MEDICATION ERROR [None]
